FAERS Safety Report 5265728-2 (Version None)
Quarter: 2007Q1

REPORT INFORMATION
  Report Type: 
  Country: None (occurrence: None)
  Receive Date: 20061213
  Receipt Date: 20041105
  Transmission Date: 20070707
  Serious: Yes (Other)
  Sender: FDA-Public Use
  Company Number: 2004UW22942

PATIENT
  Age: 80 Year
  Sex: Female

DRUGS (1)
  1. IRESSA [Suspect]
     Indication: NEUROENDOCRINE TUMOUR
     Dates: start: 20040915

REACTIONS (1)
  - EYE DISORDER [None]
